FAERS Safety Report 14718350 (Version 1)
Quarter: 2018Q2

REPORT INFORMATION
  Report Type: Spontaneous
  Country: US (occurrence: US)
  Receive Date: 20180404
  Receipt Date: 20180404
  Transmission Date: 20180711
  Serious: No
  Sender: FDA-Public Use
  Company Number: US-SA-2018SA087912

PATIENT
  Age: 68 Year
  Sex: Female

DRUGS (13)
  1. VALSARTAN. [Concomitant]
     Active Substance: VALSARTAN
  2. DUPIXENT [Suspect]
     Active Substance: DUPILUMAB
     Route: 058
     Dates: start: 20180315, end: 20180315
  3. ESTRACE [Concomitant]
     Active Substance: ESTRADIOL
  4. DULOXETINE. [Concomitant]
     Active Substance: DULOXETINE
  5. VITAMIN D3 [Concomitant]
     Active Substance: CHOLECALCIFEROL
  6. ASPIRIN. [Concomitant]
     Active Substance: ASPIRIN
  7. ALDACTAZIDE [Concomitant]
     Active Substance: HYDROCHLOROTHIAZIDE\SPIRONOLACTONE
  8. NEURONTIN [Concomitant]
     Active Substance: GABAPENTIN
  9. LASILIX [Concomitant]
     Active Substance: FUROSEMIDE
  10. CARVEDILOL. [Concomitant]
     Active Substance: CARVEDILOL
  11. HYDRALAZINE [Concomitant]
     Active Substance: HYDRALAZINE HYDROCHLORIDE
  12. ATORVASTATIN [Concomitant]
     Active Substance: ATORVASTATIN
  13. DOXEPIN [Concomitant]
     Active Substance: DOXEPIN

REACTIONS (3)
  - Urticaria [Unknown]
  - Eye swelling [Unknown]
  - Eye pruritus [Unknown]

NARRATIVE: CASE EVENT DATE: 20180318
